FAERS Safety Report 5356548-9 (Version None)
Quarter: 2007Q2

REPORT INFORMATION
  Report Type: 
  Country: None (occurrence: None)
  Receive Date: 20070529
  Receipt Date: 20070406
  Transmission Date: 20071010
  Serious: Yes (Other)
  Sender: FDA-Public Use
  Company Number: 2007027627

PATIENT

DRUGS (1)
  1. EXUBERA [Suspect]

REACTIONS (2)
  - DYSPNOEA [None]
  - WHEEZING [None]
